FAERS Safety Report 12418634 (Version 3)
Quarter: 2016Q4

REPORT INFORMATION
  Report Type: Spontaneous
  Country: JP (occurrence: JP)
  Receive Date: 20160531
  Receipt Date: 20161028
  Transmission Date: 20170207
  Serious: Yes (Other)
  Sender: FDA-Public Use
  Company Number: JP-ROCHE-1766064

PATIENT
  Age: 88 Year
  Sex: Female

DRUGS (10)
  1. BAYASPIRIN [Concomitant]
     Active Substance: ASPIRIN
     Indication: PRODUCT USED FOR UNKNOWN INDICATION
     Dosage: UNK
     Route: 048
  2. LUCENTIS [Suspect]
     Active Substance: RANIBIZUMAB
     Indication: RETINAL VEIN OCCLUSION
     Dosage: FIRST INJECTON
     Route: 050
     Dates: start: 20150209
  3. LUCENTIS [Suspect]
     Active Substance: RANIBIZUMAB
     Dosage: UNK, NINTH INJECTION
     Route: 031
     Dates: start: 20160404, end: 20160404
  4. LUCENTIS [Suspect]
     Active Substance: RANIBIZUMAB
     Dosage: UNK, SEVENTH INJECTION
     Route: 031
     Dates: start: 20151207
  5. LUCENTIS [Suspect]
     Active Substance: RANIBIZUMAB
     Dosage: SECOND INJECTION
     Route: 050
     Dates: start: 20150313
  6. LUCENTIS [Suspect]
     Active Substance: RANIBIZUMAB
     Dosage: UNK, SIXTH INJECTION
     Route: 031
     Dates: start: 20151005
  7. LUCENTIS [Suspect]
     Active Substance: RANIBIZUMAB
     Dosage: UNK, FOURTH INJECTION
     Route: 031
     Dates: start: 20150615
  8. LUCENTIS [Suspect]
     Active Substance: RANIBIZUMAB
     Dosage: UNK, FIFTH INJECTION
     Route: 031
     Dates: start: 20150810
  9. LUCENTIS [Suspect]
     Active Substance: RANIBIZUMAB
     Dosage: UNK, EIGHTH INJECTION
     Route: 031
  10. LUCENTIS [Suspect]
     Active Substance: RANIBIZUMAB
     Dosage: THIRD INJECTION
     Route: 050
     Dates: start: 20150518

REACTIONS (8)
  - Visual acuity reduced [Recovered/Resolved]
  - Cataract [Unknown]
  - Retinal haemorrhage [Unknown]
  - Dizziness [Unknown]
  - Optic atrophy [Not Recovered/Not Resolved]
  - Macular degeneration [Not Recovered/Not Resolved]
  - Visual impairment [Unknown]
  - Palpitations [Unknown]

NARRATIVE: CASE EVENT DATE: 20150227
